FAERS Safety Report 5670019-1 (Version None)
Quarter: 2008Q1

REPORT INFORMATION
  Report Type: 
  Country: None (occurrence: None)
  Receive Date: 20080312
  Receipt Date: 20060824
  Transmission Date: 20080703
  Serious: Yes (Other)
  Sender: FDA-Public Use
  Company Number: 2006SP002933

PATIENT
  Age: 59 Year
  Sex: Male

DRUGS (8)
  1. IMDUR [Suspect]
     Indication: HYPERTENSION
     Dosage: 30 MG; QD; PO
     Route: 048
     Dates: start: 20060720
  2. ATENOLOL [Suspect]
     Indication: ANGINA PECTORIS
     Dosage: 25 MG; QD; PO
     Route: 048
  3. ASPIRIN [Concomitant]
  4. INSULIN LISPRO [Concomitant]
  5. LEVEMIR [Concomitant]
  6. SYNTHROID [Concomitant]
  7. CALCIUM [Concomitant]
  8. ROCALTROL [Concomitant]

REACTIONS (1)
  - VISUAL ACUITY REDUCED [None]
